FAERS Safety Report 23576982 (Version 1)
Quarter: 2024Q1

REPORT INFORMATION
  Report Type: Spontaneous
  Country: GB (occurrence: GB)
  Receive Date: 20240228
  Receipt Date: 20240228
  Transmission Date: 20240409
  Serious: Yes (Other)
  Sender: FDA-Public Use
  Company Number: GB-APELLIS PHARMACEUTICALS-APL-2024-004156

PATIENT

DRUGS (3)
  1. PEGCETACOPLAN [Suspect]
     Active Substance: PEGCETACOPLAN
     Indication: Paroxysmal nocturnal haemoglobinuria
     Dosage: UNK
  2. PEGCETACOPLAN [Suspect]
     Active Substance: PEGCETACOPLAN
     Dosage: EVERY THIRD DAY, 3 MONTHS AFTER PEGCETACOPLAN COMMENCEMENT
  3. PEGCETACOPLAN [Suspect]
     Active Substance: PEGCETACOPLAN
     Dosage: 3 SUBSEQUENT DAYS AND DOSING INCREASED TO 3 TIMES A WEEK

REACTIONS (2)
  - Intravascular haemolysis [Unknown]
  - Blood lactate dehydrogenase increased [Unknown]
